FAERS Safety Report 8914516 (Version 6)
Quarter: 2013Q3

REPORT INFORMATION
  Report Type: Report from Study
  Country: MY (occurrence: MY)
  Receive Date: 20121119
  Receipt Date: 20130827
  Transmission Date: 20140515
  Serious: Yes (Death, Life-Threatening, Hospitalization)
  Sender: FDA-Public Use
  Company Number: MY-JNJFOC-20121104665

PATIENT
  Age: 77 Year
  Sex: Male
  Weight: 59.9 kg

DRUGS (7)
  1. ABIRATERONE ACETATE [Suspect]
     Route: 048
  2. ABIRATERONE ACETATE [Suspect]
     Indication: PROSTATE CANCER METASTATIC
     Route: 048
     Dates: start: 20121003, end: 20121030
  3. PREDNISOLONE [Suspect]
     Indication: PROSTATE CANCER METASTATIC
     Route: 048
     Dates: start: 20121003, end: 20121121
  4. DOCETAXEL [Concomitant]
     Indication: HORMONE THERAPY
     Route: 065
     Dates: start: 20111217
  5. PREDNISONE [Concomitant]
     Indication: HORMONE THERAPY
     Route: 065
     Dates: start: 20111217
  6. LASIX [Concomitant]
     Indication: DYSPNOEA
     Route: 065
     Dates: start: 20121105, end: 20121109
  7. SPIRONOLACTONE [Concomitant]
     Indication: DYSPNOEA
     Route: 065
     Dates: start: 20121101, end: 20121109

REACTIONS (2)
  - Dyspnoea [Recovering/Resolving]
  - Myocardial ischaemia [Fatal]
